FAERS Safety Report 14713152 (Version 3)
Quarter: 2018Q2

REPORT INFORMATION
  Report Type: Spontaneous
  Country: US (occurrence: US)
  Receive Date: 20180404
  Receipt Date: 20180503
  Transmission Date: 20180711
  Serious: Yes (Other)
  Sender: FDA-Public Use
  Company Number: US-PFIZER INC-2018136002

PATIENT
  Age: 54 Year
  Sex: Female
  Weight: 69 kg

DRUGS (1)
  1. IBRANCE [Suspect]
     Active Substance: PALBOCICLIB
     Indication: BREAST CANCER METASTATIC
     Dosage: 125 MG, CYCLIC (DAILY FOR 21 DAYS, EVERY 28 DAYS/DAYS 1-21 Q28 DAYS)
     Route: 048
     Dates: start: 20180322

REACTIONS (11)
  - Constipation [Unknown]
  - Liver disorder [Unknown]
  - Headache [Unknown]
  - Vomiting [Unknown]
  - Oropharyngeal pain [Unknown]
  - Hepatic steatosis [Unknown]
  - White blood cell count decreased [Unknown]
  - Nasopharyngitis [Unknown]
  - Nausea [Unknown]
  - Platelet count decreased [Unknown]
  - Tremor [Unknown]

NARRATIVE: CASE EVENT DATE: 2018
